FAERS Safety Report 6355650-2 (Version None)
Quarter: 2009Q3

REPORT INFORMATION
  Report Type: 
  Country: None (occurrence: None)
  Receive Date: 20090910
  Receipt Date: 20090829
  Transmission Date: 20100115
  Serious: Yes (Hospitalization)
  Sender: FDA-Public Use
  Company Number: 1-19692366

PATIENT
  Age: 32 Year
  Sex: Female

DRUGS (3)
  1. CITALOPRAM (MANUFACTURER UNKNOWN) [Suspect]
     Indication: MAJOR DEPRESSION
     Dosage: 40 MG PER DAY, ORAL
     Route: 048
  2. VITAMIN B-12 [Concomitant]
  3. MIRTAZAPINE [Concomitant]

REACTIONS (2)
  - AUTOIMMUNE THROMBOCYTOPENIA [None]
  - RHEUMATOID FACTOR INCREASED [None]
